FAERS Safety Report 7959829-5 (Version None)
Quarter: 2011Q4

REPORT INFORMATION
  Report Type: 
  Country: None (occurrence: None)
  Receive Date: 20111206
  Receipt Date: 20111202
  Transmission Date: 20120403
  Serious: Yes (Hospitalization, Other)
  Sender: FDA-Public Use
  Company Number: US-PFIZER INC-2011232205

PATIENT
  Sex: Female
  Weight: 72.562 kg

DRUGS (11)
  1. ACETAMINOPHEN [Concomitant]
     Dosage: 500 MG, UNK
     Route: 048
  2. ATENOLOL [Concomitant]
     Dosage: 25 MG, UNK
     Route: 048
  3. LORAZEPAM [Concomitant]
     Dosage: 0.5 MG, UNK
     Route: 048
  4. COLESTYRAMINE [Concomitant]
     Dosage: 4 G, UNK
  5. ZANTAC [Concomitant]
     Dosage: 75 TAB
  6. HYDROCHLOROTHIAZID [Concomitant]
     Dosage: 25 MG, UNK
     Route: 048
  7. SUTENT [Suspect]
     Dosage: 50 MG DAILY, 4 WEEKS ON AND 2 WEEKS OFF
     Route: 048
  8. PRILOSEC [Concomitant]
     Dosage: 10 MG, UNK
     Route: 048
  9. CLONIDINE [Concomitant]
     Dosage: 0.1 MG, UNK
     Route: 048
  10. PROCHLORPERAZINE [Concomitant]
     Dosage: 10 MG, UNK
  11. LOVASTATIN [Concomitant]
     Dosage: 10 MG, UNK
     Route: 048

REACTIONS (8)
  - HYPERTENSION [None]
  - DYSGEUSIA [None]
  - BLOOD PRESSURE INCREASED [None]
  - DIARRHOEA [None]
  - DYSPEPSIA [None]
  - GINGIVAL DISORDER [None]
  - DYSPHAGIA [None]
  - DEHYDRATION [None]
